FAERS Safety Report 6045284-1 (Version None)
Quarter: 2009Q1

REPORT INFORMATION
  Report Type: 
  Country: None (occurrence: None)
  Receive Date: 20090121
  Receipt Date: 20081205
  Transmission Date: 20090719
  Serious: No
  Sender: FDA-Public Use
  Company Number: US-BAYER-200840288NA

PATIENT
  Age: 30 Year
  Sex: Female
  Weight: 73 kg

DRUGS (1)
  1. MIRENA [Suspect]
     Indication: CONTRACEPTION
     Route: 015
     Dates: start: 20080801, end: 20081205

REACTIONS (5)
  - ALOPECIA [None]
  - INTRA-UTERINE CONTRACEPTIVE DEVICE EXPELLED [None]
  - MOOD ALTERED [None]
  - VAGINAL HAEMORRHAGE [None]
  - WEIGHT INCREASED [None]
